FAERS Safety Report 15311579 (Version 1)
Quarter: 2018Q3

REPORT INFORMATION
  Report Type: Report from Study
  Country: CN (occurrence: CN)
  Receive Date: 20180823
  Receipt Date: 20180823
  Transmission Date: 20181010
  Serious: Yes (Death)
  Sender: FDA-Public Use
  Company Number: CN-ROCHE-2171908

PATIENT
  Age: 49 Year
  Sex: Female
  Weight: 72 kg

DRUGS (4)
  1. PLACEBO [Suspect]
     Active Substance: UNSPECIFIED INGREDIENT
     Indication: HER-2 POSITIVE BREAST CANCER
     Dosage: LOADING DOSE (FOR CYCLE 1)
     Route: 042
     Dates: start: 20161024
  2. DOCETAXEL. [Suspect]
     Active Substance: DOCETAXEL
     Indication: HER-2 POSITIVE BREAST CANCER
     Dosage: DATE OF MOST RECENT DOSE OF DOCETAXEL PRIOR TO SAE ONSET ON 22/MAR/2017 Q3S
     Route: 042
     Dates: start: 20161024
  3. TRASTUZUMAB. [Suspect]
     Active Substance: TRASTUZUMAB
     Dosage: MAINTENANCE DOSE. ?DOSE OF LAST TRASTUZUMAB ADMINISTERED PRIOR TO SAE ONSET ON 12/APR/2017 414 MG Q3
     Route: 042
  4. TRASTUZUMAB. [Suspect]
     Active Substance: TRASTUZUMAB
     Indication: HER-2 POSITIVE BREAST CANCER
     Dosage: AS LOADING DOSE
     Route: 042
     Dates: start: 20161024

REACTIONS (1)
  - Death [Fatal]

NARRATIVE: CASE EVENT DATE: 20180608
